FAERS Safety Report 17352396 (Version 2)
Quarter: 2020Q1

REPORT INFORMATION
  Report Type: Spontaneous
  Country: JP (occurrence: JP)
  Receive Date: 20200130
  Receipt Date: 20200202
  Transmission Date: 20200409
  Serious: Yes (Death)
  Sender: FDA-Public Use
  Company Number: JP-ROCHE-2536973

PATIENT
  Age: 60 Year
  Sex: Male

DRUGS (4)
  1. AVASTIN [Suspect]
     Active Substance: BEVACIZUMAB
     Indication: SIGNET-RING CELL CARCINOMA
     Route: 042
  2. PACLITAXEL. [Concomitant]
     Active Substance: PACLITAXEL
     Indication: SIGNET-RING CELL CARCINOMA
     Dosage: DOSAGE IS UNCERTAIN.
     Route: 041
  3. TECENTRIQ [Suspect]
     Active Substance: ATEZOLIZUMAB
     Indication: SIGNET-RING CELL CARCINOMA
     Dosage: DOSAGE IS UNCERTAIN.
     Route: 041
  4. CARBOPLATIN. [Concomitant]
     Active Substance: CARBOPLATIN
     Indication: SIGNET-RING CELL CARCINOMA
     Dosage: DOSAGE IS UNCERTAIN.
     Route: 041

REACTIONS (3)
  - Intentional product use issue [Unknown]
  - Off label use [Unknown]
  - Pericardial haemorrhage [Fatal]
